FAERS Safety Report 9387324 (Version 1)
Quarter: 2013Q3

REPORT INFORMATION
  Report Type: Spontaneous
  Country: US (occurrence: None)
  Receive Date: 20130703
  Receipt Date: 20130703
  Transmission Date: 20140515
  Serious: Yes (Other)
  Sender: FDA-Public Use
  Company Number: None

PATIENT
  Sex: Female
  Weight: 76.2 kg

DRUGS (3)
  1. NEXIUM [Suspect]
     Indication: GASTROOESOPHAGEAL REFLUX DISEASE
     Dosage: STRENGTH:  40 MG?QUANTITY:  30?FREQUENCY:  ONE EACH MORNING?HOW:  MOUTH?
     Route: 048
     Dates: start: 20130604, end: 20130618
  2. LEVOTHYROXINE [Concomitant]
  3. ADVIL [Concomitant]

REACTIONS (4)
  - Renal disorder [None]
  - Renal pain [None]
  - Sleep disorder [None]
  - Product quality issue [None]
